FAERS Safety Report 6780892-1 (Version None)
Quarter: 2010Q2

REPORT INFORMATION
  Report Type: 
  Country: None (occurrence: None)
  Receive Date: 20100621
  Receipt Date: 20100608
  Transmission Date: 20101027
  Serious: Yes (Other)
  Sender: FDA-Public Use
  Company Number: US-RB-011792-10

PATIENT
  Age: 74 Year
  Sex: Female

DRUGS (3)
  1. MUCINEX [Suspect]
     Dosage: STARTED TAKING ONE TABLET
     Route: 048
     Dates: start: 20100605
  2. MUCINEX [Suspect]
     Dosage: STARTED TAKING 1 TABLET AND IS NOW TAKING 2 TABLETS EVERY 12 HOURS
     Route: 048
     Dates: start: 20100601
  3. LORAZEPAM [Concomitant]

REACTIONS (1)
  - FAECES DISCOLOURED [None]
